FAERS Safety Report 5664966-4 (Version None)
Quarter: 2008Q1

REPORT INFORMATION
  Report Type: 
  Country: None (occurrence: None)
  Receive Date: 20080314
  Receipt Date: 20080303
  Transmission Date: 20080703
  Serious: Yes (Other)
  Sender: FDA-Public Use
  Company Number: DE-PFIZER INC-2008012931

PATIENT
  Sex: Male
  Weight: 70 kg

DRUGS (4)
  1. LYRICA [Suspect]
     Indication: PHANTOM PAIN
     Route: 048
     Dates: start: 20080123, end: 20080203
  2. HYDROMORPHONE HYDROCHLORIDE [Concomitant]
     Route: 048
  3. NOVALGIN [Concomitant]
     Route: 048
  4. LITHIUM CARBONATE [Concomitant]
     Route: 048

REACTIONS (5)
  - DRY SKIN [None]
  - OEDEMA PERIPHERAL [None]
  - PETECHIAE [None]
  - PRURITUS [None]
  - SKIN DISORDER [None]
